FAERS Safety Report 26021716 (Version 1)
Quarter: 2025Q4

REPORT INFORMATION
  Report Type: Spontaneous
  Country: US (occurrence: US)
  Receive Date: 20251110
  Receipt Date: 20251110
  Transmission Date: 20260117
  Serious: No
  Sender: ABBVIE
  Company Number: US-ABBVIE-6536445

PATIENT
  Age: 91 Year
  Sex: Female

DRUGS (3)
  1. LINZESS [Suspect]
     Active Substance: LINACLOTIDE
     Indication: Constipation
     Dosage: 72 MICROGRAM
     Route: 048
     Dates: start: 20251102
  2. Dulcolax [Concomitant]
     Indication: Constipation
     Dosage: ONCE EVERY 4 DAYS
  3. LORAZEPAM [Concomitant]
     Active Substance: LORAZEPAM
     Indication: Anxiety

REACTIONS (1)
  - Diarrhoea [Recovering/Resolving]

NARRATIVE: CASE EVENT DATE: 20251105
